FAERS Safety Report 5310241-7 (Version None)
Quarter: 2007Q2

REPORT INFORMATION
  Report Type: 
  Country: None (occurrence: None)
  Receive Date: 20070427
  Receipt Date: 20070424
  Transmission Date: 20071010
  Serious: Yes (Other)
  Sender: FDA-Public Use
  Company Number: FR-ABBOTT-07P-056-0365853-00

PATIENT
  Age: 36 Year
  Sex: Male

DRUGS (21)
  1. LOPINAVIR/RITONAVIR [Suspect]
     Indication: HIV INFECTION
     Dosage: NOT REPORTED
  2. VINBLASTINE SULFATE [Interacting]
     Indication: HODGKIN'S DISEASE
  3. VINBLASTINE SULFATE [Interacting]
  4. VINBLASTINE SULFATE [Interacting]
  5. LAMIVUDINE [Concomitant]
     Indication: HIV INFECTION
     Dosage: NOT REPORTED
  6. TENOFOVIR [Concomitant]
     Indication: HIV INFECTION
     Dosage: NOT REPORTED
  7. ENFUVIRTIDE [Concomitant]
     Indication: HIV INFECTION
     Dosage: NOT REPORTED
  8. CLINDAMYCIN [Concomitant]
     Indication: CARDIOMYOPATHY
  9. CLINDAMYCIN [Concomitant]
     Indication: HIV INFECTION
  10. PYRIMETHAMINE TAB [Concomitant]
     Indication: CARDIOMYOPATHY
  11. PYRIMETHAMINE TAB [Concomitant]
     Indication: HIV INFECTION
  12. SPIRONOLACTONE [Concomitant]
     Indication: CARDIOMYOPATHY
  13. SPIRONOLACTONE [Concomitant]
     Indication: HIV INFECTION
  14. PERINDOPRIL [Concomitant]
     Indication: CARDIOMYOPATHY
  15. PERINDOPRIL [Concomitant]
     Indication: HIV INFECTION
  16. DOXORUBICIN HCL [Concomitant]
     Indication: HODGKIN'S DISEASE
  17. BLEOMYCIN [Concomitant]
     Indication: HODGKIN'S DISEASE
  18. DACARBAZINE [Concomitant]
     Indication: HODGKIN'S DISEASE
  19. PREDNISOLONE [Concomitant]
     Indication: HODGKIN'S DISEASE
  20. PENTAMIDINE ISETHIONATE [Concomitant]
     Indication: DRUG USE FOR UNKNOWN INDICATION
  21. DEXRAZOXANE [Concomitant]
     Indication: DRUG USE FOR UNKNOWN INDICATION

REACTIONS (3)
  - DRUG INTERACTION [None]
  - HODGKIN'S DISEASE [None]
  - NEUTROPENIA [None]
